FAERS Safety Report 18906784 (Version 1)
Quarter: 2021Q1

REPORT INFORMATION
  Report Type: Other
  Country: PL (occurrence: PL)
  Receive Date: 20210218
  Receipt Date: 20210218
  Transmission Date: 20210420
  Serious: Yes (Other)
  Sender: FDA-Public Use
  Company Number: PL-CELLTRION INC.-2021PL001653

PATIENT

DRUGS (11)
  1. ASPIRIN [ACETYLSALICYLIC ACID] [Concomitant]
     Active Substance: ASPIRIN
     Dosage: EC
  2. PARACETAMOL [Concomitant]
     Active Substance: ACETAMINOPHEN
     Dosage: 1?1?1?1
  3. TAMOXIFEN [Concomitant]
     Active Substance: TAMOXIFEN
     Dosage: 1?0?0?0
  4. IBUPROFEN. [Concomitant]
     Active Substance: IBUPROFEN
     Dosage: 1?1?0?1
  5. NAPROXEN. [Concomitant]
     Active Substance: NAPROXEN
     Dosage: 250 MILLIGRAM. 1?0?1
  6. MANTI [Concomitant]
     Dosage: 1?0?0?1
  7. TRASTUZUMAB (UNKNOWN) [Suspect]
     Active Substance: TRASTUZUMAB
     Indication: BREAST CANCER
     Route: 065
  8. SIMVASTATIN. [Concomitant]
     Active Substance: SIMVASTATIN
     Dosage: 0?0?0?1
  9. ALUGASTRIN [Concomitant]
     Dosage: 15 ML, 1?1?1?1
  10. FLUOXETINE [Concomitant]
     Active Substance: FLUOXETINE HYDROCHLORIDE
     Dosage: 1?0?0?0
  11. FUROSEMIDE. [Concomitant]
     Active Substance: FUROSEMIDE
     Dosage: 1?0?0?1

REACTIONS (8)
  - Nausea [Unknown]
  - Seizure [Unknown]
  - Back pain [Unknown]
  - Fatigue [Unknown]
  - Dyspepsia [Unknown]
  - Metastases to central nervous system [Unknown]
  - Cardiac failure [Unknown]
  - Myalgia [Unknown]
